FAERS Safety Report 25331836 (Version 3)
Quarter: 2025Q4

REPORT INFORMATION
  Report Type: Spontaneous
  Country: EU (occurrence: EU)
  Receive Date: 20250519
  Receipt Date: 20251024
  Transmission Date: 20260118
  Serious: Yes (Other)
  Sender: ABBVIE
  Company Number: None

PATIENT
  Age: 48 Year
  Sex: Male
  Weight: 74 kg

DRUGS (4)
  1. HUMIRA [Suspect]
     Active Substance: ADALIMUMAB
     Indication: Rheumatoid arthritis
     Dosage: FOA: SOLUTION FOR INJECTION IN PRE-FILLED PEN
     Route: 058
     Dates: start: 20240415, end: 20250116
  2. HYRIMOZ [Suspect]
     Active Substance: ADALIMUMAB-ADAZ
     Indication: Psoriatic arthropathy
     Dosage: FORM STRENGTH: 40 MG
     Route: 058
     Dates: start: 20250128, end: 20250508
  3. HYRIMOZ [Suspect]
     Active Substance: ADALIMUMAB-ADAZ
     Indication: Psoriatic arthropathy
     Dosage: FORM STRENGTH: 40 MG?LAST ADMIN DATE: 2025
     Route: 058
     Dates: start: 202505
  4. AMLODIPINE\CANDESARTAN CILEXETIL [Concomitant]
     Active Substance: AMLODIPINE\CANDESARTAN CILEXETIL
     Indication: Product used for unknown indication
     Dosage: DOSE STRENGTH: AMLODIPINA 5 MG, CANDESARTAN 8 MG
     Route: 065

REACTIONS (7)
  - Mouth ulceration [Not Recovered/Not Resolved]
  - Drug ineffective [Recovered/Resolved]
  - Uveitis [Recovered/Resolved]
  - Blood pressure increased [Not Recovered/Not Resolved]
  - Product substitution issue [Recovered/Resolved]
  - Intraocular pressure increased [Recovered/Resolved]
  - Arthralgia [Recovered/Resolved]

NARRATIVE: CASE EVENT DATE: 20250212
